FAERS Safety Report 10924012 (Version 2)
Quarter: 2015Q2

REPORT INFORMATION
  Report Type: Spontaneous
  Country: US (occurrence: US)
  Receive Date: 20150318
  Receipt Date: 20150526
  Transmission Date: 20150821
  Serious: No
  Sender: FDA-Public Use
  Company Number: US-JNJFOC-20130713742

PATIENT
  Age: 18 Year
  Sex: Male
  Weight: 72.58 kg

DRUGS (1)
  1. SPORANOX [Suspect]
     Active Substance: ITRACONAZOLE\SODIUM CHLORIDE
     Indication: TINEA PEDIS
     Dosage: PRESCRIBED TWO CAPSULES TWICE A DAY FOR SEVEN DAYS
     Route: 048
     Dates: start: 20130707, end: 20130708

REACTIONS (4)
  - Peripheral swelling [Recovered/Resolved]
  - Inflammation [Unknown]
  - Underdose [Unknown]
  - Erythema [Recovered/Resolved]

NARRATIVE: CASE EVENT DATE: 201307
